FAERS Safety Report 7280438-8 (Version None)
Quarter: 2011Q1

REPORT INFORMATION
  Report Type: 
  Country: None (occurrence: None)
  Receive Date: 20110208
  Receipt Date: 20110127
  Transmission Date: 20110831
  Serious: Yes (Hospitalization)
  Sender: FDA-Public Use
  Company Number: BE-ROCHE-716637

PATIENT
  Sex: Female
  Weight: 98 kg

DRUGS (5)
  1. TEMESTA [Concomitant]
     Indication: INSOMNIA
  2. ZOLPIDEM [Concomitant]
     Indication: INSOMNIA
  3. ZOPICLONE [Concomitant]
     Indication: INSOMNIA
  4. OXALIPLATIN [Suspect]
     Indication: RECTAL CANCER
     Dosage: DATE OF LAST DOSE PRIOR TO SAE: 12 JULY 2010. TREATMENT PREMATURELY STOPPED.
     Route: 042
     Dates: start: 20100621
  5. CAPECITABINE [Suspect]
     Indication: RECTAL CANCER
     Dosage: BID D1-33. DATE OF LAST DOSE PRIOR TO SAE: 19 JULY 2010. TREATMENT PREMATURELY STOPPED.
     Route: 048
     Dates: start: 20100621

REACTIONS (5)
  - DIARRHOEA [None]
  - PYREXIA [None]
  - ASTHENIA [None]
  - NAUSEA [None]
  - VOMITING [None]
